FAERS Safety Report 18797268 (Version 1)
Quarter: 2021Q1

REPORT INFORMATION
  Report Type: Spontaneous
  Country: RO (occurrence: RO)
  Receive Date: 20210128
  Receipt Date: 20210128
  Transmission Date: 20210419
  Serious: Yes (Life-Threatening, Hospitalization, Other)
  Sender: FDA-Public Use
  Company Number: RO-ASTRAZENECA-2021A012085

PATIENT
  Sex: Male

DRUGS (3)
  1. DIOVAN [Concomitant]
     Active Substance: VALSARTAN
  2. BYDUREON BCISE [Suspect]
     Active Substance: EXENATIDE
     Route: 065
  3. TERTENSIF [Concomitant]
     Active Substance: INDAPAMIDE

REACTIONS (7)
  - Feeling abnormal [Unknown]
  - Malaise [Unknown]
  - Hyperhidrosis [Unknown]
  - Liver disorder [Unknown]
  - Swelling face [Unknown]
  - Blood pressure increased [Unknown]
  - Fatigue [Unknown]

NARRATIVE: CASE EVENT DATE: 20210119
